FAERS Safety Report 7563499-8 (Version None)
Quarter: 2011Q2

REPORT INFORMATION
  Report Type: 
  Country: None (occurrence: None)
  Receive Date: 20110615
  Receipt Date: 20110602
  Transmission Date: 20111010
  Serious: Yes (Life-Threatening)
  Sender: FDA-Public Use
  Company Number: GER/UKI/11/0018607

PATIENT
  Age: 42 Year
  Sex: Male
  Weight: 46.2669 kg

DRUGS (6)
  1. THIAMINE (THIAMINE) [Concomitant]
  2. OMEPRAZOLE [Suspect]
     Indication: PRODUCT USED FOR UNKNOWN INDICATION
     Dosage: 40 MG, ORAL
     Route: 048
     Dates: start: 20110421, end: 20110517
  3. MULTIVITAMIN (VIGRAN) [Concomitant]
  4. LACTULOSE [Concomitant]
  5. POTASSIUM CHLORIDE [Concomitant]
  6. VITAMIN B COMPLEX STRONG(B-KOMPLEX) [Concomitant]

REACTIONS (4)
  - VASCULITIC RASH [None]
  - DRUG RASH WITH EOSINOPHILIA AND SYSTEMIC SYMPTOMS [None]
  - RENAL FAILURE [None]
  - CONFUSIONAL STATE [None]
